FAERS Safety Report 17286665 (Version 1)
Quarter: 2020Q1

REPORT INFORMATION
  Report Type: Spontaneous
  Country: US (occurrence: US)
  Receive Date: 20200119
  Receipt Date: 20200119
  Transmission Date: 20200409
  Serious: Yes (Other)
  Sender: FDA-Public Use
  Company Number: US-TEVA-2020-US-1168656

PATIENT
  Sex: Male

DRUGS (3)
  1. AMNESTEEM [Suspect]
     Active Substance: ISOTRETINOIN
     Route: 065
     Dates: start: 20190819, end: 2019
  2. MYORISAN [Suspect]
     Active Substance: ISOTRETINOIN
     Route: 065
     Dates: start: 20190716, end: 2019
  3. CLARAVIS [Suspect]
     Active Substance: ISOTRETINOIN
     Route: 065
     Dates: start: 20190816, end: 2019

REACTIONS (1)
  - Intervertebral disc injury [Unknown]

NARRATIVE: CASE EVENT DATE: 2019
